FAERS Safety Report 23429330 (Version 2)
Quarter: 2024Q1

REPORT INFORMATION
  Report Type: Spontaneous
  Country: JP (occurrence: JP)
  Receive Date: 20240122
  Receipt Date: 20240312
  Transmission Date: 20240410
  Serious: Yes (Hospitalization, Other)
  Sender: FDA-Public Use
  Company Number: JP-PFIZER INC-PV202400007362

PATIENT
  Age: 80 Year
  Sex: Female
  Weight: 48.9 kg

DRUGS (10)
  1. RHEUMATREX [Suspect]
     Active Substance: METHOTREXATE SODIUM
     Indication: Rheumatoid arthritis
     Dosage: UNK
     Route: 048
  2. RHEUMATREX [Suspect]
     Active Substance: METHOTREXATE SODIUM
     Dosage: 6MG/2 WEEKS, 1 CAPSULE X 2 TIMES, ONCE EVERY 2 WEEKS (WEDNESDAY); 1 CAPSULE X 1 TIME, ONCE EVERY 2 W
     Route: 048
     Dates: start: 201808, end: 20180906
  3. TELMISARTAN [Concomitant]
     Active Substance: TELMISARTAN
     Dosage: UNK
     Route: 048
     Dates: end: 20180906
  4. VIVIANT [Concomitant]
     Active Substance: BAZEDOXIFENE
     Dosage: UNK
     Route: 048
     Dates: end: 20180906
  5. ELDECALCITOL [Concomitant]
     Active Substance: ELDECALCITOL
     Dosage: UNK
     Route: 048
     Dates: end: 20180906
  6. PITAVASTATIN [Concomitant]
     Active Substance: PITAVASTATIN
     Dosage: UNK
     Route: 048
     Dates: end: 20180906
  7. LANSOPRAZOLE [Concomitant]
     Active Substance: LANSOPRAZOLE
     Dosage: UNK
     Route: 048
     Dates: end: 20180906
  8. TRIAZOLAM [Concomitant]
     Active Substance: TRIAZOLAM
     Dosage: UNK
     Route: 048
     Dates: end: 20180906
  9. ETIZOLAM [Concomitant]
     Active Substance: ETIZOLAM
     Dosage: UNK
     Route: 048
     Dates: end: 20180906
  10. LOXOPROFEN [Concomitant]
     Active Substance: LOXOPROFEN
     Dosage: UNK
     Route: 048
     Dates: end: 20180906

REACTIONS (10)
  - Pancytopenia [Recovering/Resolving]
  - Febrile neutropenia [Unknown]
  - Renal impairment [Unknown]
  - Urinary tract infection [Unknown]
  - Stomatitis [Not Recovered/Not Resolved]
  - Lip erosion [Unknown]
  - Lip haemorrhage [Unknown]
  - Haemorrhage [Unknown]
  - Urinary tract infection [Unknown]
  - Drug clearance increased [Unknown]

NARRATIVE: CASE EVENT DATE: 20180906
